FAERS Safety Report 24995649 (Version 1)
Quarter: 2025Q1

REPORT INFORMATION
  Report Type: Spontaneous
  Country: US (occurrence: None)
  Receive Date: 20250221
  Receipt Date: 20250221
  Transmission Date: 20250408
  Serious: Yes (Hospitalization, Other)
  Sender: FDA-CTU
  Company Number: None

PATIENT
  Age: 0 Year
  Sex: Male
  Weight: 2.84 kg

DRUGS (4)
  1. ARIPIPRAZOLE [Suspect]
     Active Substance: ARIPIPRAZOLE
     Indication: Bipolar disorder
  2. Maternal medication: Bupropion XL [Concomitant]
  3. Maternal medication: Omeprazole [Concomitant]
  4. Maternal medication: Preogesterone [Concomitant]

REACTIONS (6)
  - Cyanosis neonatal [None]
  - Respiratory disorder neonatal [None]
  - Meconium aspiration syndrome [None]
  - Hypoglycaemia neonatal [None]
  - Maternal drugs affecting foetus [None]
  - Exposure during pregnancy [None]

NARRATIVE: CASE EVENT DATE: 20220227
